FAERS Safety Report 10640606 (Version 1)
Quarter: 2014Q4

REPORT INFORMATION
  Report Type: Spontaneous
  Country: US (occurrence: None)
  Receive Date: 20141208
  Receipt Date: 20141208
  Transmission Date: 20150529
  Serious: Yes (Other)
  Sender: FDA-Public Use
  Company Number: None

PATIENT
  Age: 71 Year
  Sex: Female

DRUGS (5)
  1. METOPROLOL (EXTENDED RELEASE) [Suspect]
     Active Substance: METOPROLOL
     Indication: TACHYCARDIA
     Dosage: 1 PILL
     Route: 048
     Dates: start: 20141108, end: 20141119
  2. SYNTHROID [Concomitant]
     Active Substance: LEVOTHYROXINE SODIUM
  3. TYLENOL [Concomitant]
     Active Substance: ACETAMINOPHEN
  4. TOPROL XL [Concomitant]
     Active Substance: METOPROLOL SUCCINATE
  5. ZOCOR [Concomitant]
     Active Substance: SIMVASTATIN

REACTIONS (2)
  - Product quality issue [None]
  - Tachycardia [None]

NARRATIVE: CASE EVENT DATE: 20141118
